FAERS Safety Report 16628517 (Version 3)
Quarter: 2019Q3

REPORT INFORMATION
  Report Type: Spontaneous
  Country: US (occurrence: US)
  Receive Date: 20190725
  Receipt Date: 20190814
  Transmission Date: 20191004
  Serious: No
  Sender: FDA-Public Use
  Company Number: US-GLAXOSMITHKLINE-US2019130851

PATIENT
  Sex: Female
  Weight: 121.1 kg

DRUGS (1)
  1. BENLYSTA [Suspect]
     Active Substance: BELIMUMAB
     Indication: PRODUCT USED FOR UNKNOWN INDICATION
     Dosage: 200 MG/ML, UNK
     Route: 042
     Dates: start: 2019

REACTIONS (3)
  - Product complaint [Unknown]
  - Exposure via skin contact [Unknown]
  - Incorrect dose administered [Unknown]
